FAERS Safety Report 9663889 (Version 3)
Quarter: 2016Q1

REPORT INFORMATION
  Report Type: Report from Study
  Country: US (occurrence: US)
  Receive Date: 20131101
  Receipt Date: 20160302
  Transmission Date: 20160526
  Serious: Yes (Death, Hospitalization)
  Sender: FDA-Public Use
  Company Number: US-ASTELLAS-2013US011303

PATIENT
  Age: 92 Year
  Sex: Male

DRUGS (2)
  1. ERLOTINIB [Suspect]
     Active Substance: ERLOTINIB
     Indication: LUNG NEOPLASM MALIGNANT
     Route: 048
     Dates: start: 20100525
  2. ERLOTINIB [Suspect]
     Active Substance: ERLOTINIB
     Indication: PROSTATE CANCER
     Route: 048

REACTIONS (2)
  - Cerebrovascular accident [Fatal]
  - Dysphagia [Unknown]

NARRATIVE: CASE EVENT DATE: 20131028
